FAERS Safety Report 5976172-4 (Version None)
Quarter: 2008Q4

REPORT INFORMATION
  Report Type: 
  Country: None (occurrence: None)
  Receive Date: 20081202
  Receipt Date: 20081126
  Transmission Date: 20090506
  Serious: Yes (Hospitalization, Other)
  Sender: FDA-Public Use
  Company Number: GB-TEVA-181359ISR

PATIENT
  Sex: Male

DRUGS (1)
  1. RAMIPRIL [Suspect]
     Indication: CARDIAC FAILURE
     Route: 048
     Dates: start: 20081110, end: 20081111

REACTIONS (4)
  - ASCITES [None]
  - CARDIAC FAILURE [None]
  - DYSPNOEA [None]
  - WHEEZING [None]
